FAERS Safety Report 11641983 (Version 3)
Quarter: 2015Q4

REPORT INFORMATION
  Report Type: Spontaneous
  Country: JP (occurrence: JP)
  Receive Date: 20151019
  Receipt Date: 20151204
  Transmission Date: 20160304
  Serious: Yes (Hospitalization)
  Sender: FDA-Public Use
  Company Number: JP-BAYER-2015-440575

PATIENT
  Age: 42 Year
  Sex: Male

DRUGS (5)
  1. PRASUGREL [Suspect]
     Active Substance: PRASUGREL
     Dosage: DAILY DOSE 3.75 MG
     Route: 048
  2. PRASUGREL [Suspect]
     Active Substance: PRASUGREL
     Dosage: DAILY DOSE 20 MG
     Route: 048
     Dates: start: 201503
  3. BAYASPIRIN [Suspect]
     Active Substance: ASPIRIN
     Dosage: 100 MG, QD
     Route: 048
     Dates: start: 20150318
  4. PRASUGREL [Suspect]
     Active Substance: PRASUGREL
     Dosage: 20 MG, QD
     Route: 048
     Dates: start: 20150318
  5. PRASUGREL [Suspect]
     Active Substance: PRASUGREL
     Dosage: 3.75 MG, QD
     Route: 048

REACTIONS (3)
  - Depressed level of consciousness [Recovering/Resolving]
  - Ventricular fibrillation [Recovering/Resolving]
  - Vascular stent thrombosis [Recovering/Resolving]

NARRATIVE: CASE EVENT DATE: 20150329
